FAERS Safety Report 21017115 (Version 1)
Quarter: 2022Q2

REPORT INFORMATION
  Report Type: Spontaneous
  Country: SI (occurrence: SI)
  Receive Date: 20220628
  Receipt Date: 20220628
  Transmission Date: 20220721
  Serious: Yes (Other)
  Sender: FDA-Public Use
  Company Number: SI-PFIZER INC-PV202200007500

PATIENT
  Age: 63 Year
  Sex: Male

DRUGS (3)
  1. SUNITINIB MALATE [Suspect]
     Active Substance: SUNITINIB MALATE
     Indication: Renal cancer metastatic
     Dosage: UNK
     Dates: start: 201708, end: 20191204
  2. SUNITINIB MALATE [Suspect]
     Active Substance: SUNITINIB MALATE
     Dosage: UNK
     Dates: start: 202002, end: 202102
  3. DENOSUMAB [Suspect]
     Active Substance: DENOSUMAB
     Dosage: UNK, MONTHLY
     Route: 058
     Dates: start: 201708

REACTIONS (7)
  - Neutropenia [Unknown]
  - Deep vein thrombosis [Unknown]
  - Wound [Recovered/Resolved]
  - Impaired healing [Recovered/Resolved]
  - Neoplasm progression [Unknown]
  - Blood pressure abnormal [Recovered/Resolved]
  - Hypophosphataemia [Unknown]

NARRATIVE: CASE EVENT DATE: 20170801
